FAERS Safety Report 9158666 (Version 2)
Quarter: 2013Q2

REPORT INFORMATION
  Report Type: Spontaneous
  Country: US (occurrence: US)
  Receive Date: 20130312
  Receipt Date: 20130405
  Transmission Date: 20140414
  Serious: Yes (Other)
  Sender: FDA-Public Use
  Company Number: US-TEVA-390793USA

PATIENT
  Age: 23 Year
  Sex: Female
  Weight: 61.74 kg

DRUGS (1)
  1. PARAGARD 380A [Suspect]
     Indication: CONTRACEPTION
     Route: 015
     Dates: start: 20120202, end: 20130114

REACTIONS (4)
  - Endometritis [Recovering/Resolving]
  - Vulvovaginal pain [Recovered/Resolved]
  - Metrorrhagia [Recovering/Resolving]
  - Muscle spasms [Recovering/Resolving]
